FAERS Safety Report 18587985 (Version 1)
Quarter: 2020Q4

REPORT INFORMATION
  Report Type: Report from Study
  Country: DE (occurrence: DE)
  Receive Date: 20201207
  Receipt Date: 20201207
  Transmission Date: 20210114
  Serious: Yes (Hospitalization)
  Sender: FDA-Public Use
  Company Number: DE-TAKEDA-DE201924857

PATIENT

DRUGS (16)
  1. TEDUGLUTIDE [Suspect]
     Active Substance: TEDUGLUTIDE
     Dosage: 2.4 MILLIGRAM, (TED DAILY DOSE 0.05 MG/KG, DOSES PER WEEK 7)
     Route: 065
     Dates: start: 201809
  2. TEDUGLUTIDE [Suspect]
     Active Substance: TEDUGLUTIDE
     Indication: SHORT-BOWEL SYNDROME
     Dosage: 2.4 MILLIGRAM, (TED DAILY DOSE 0.05 MG/KG, DOSES PER WEEK 7)
     Route: 065
     Dates: start: 20160126, end: 201807
  3. TEDUGLUTIDE [Suspect]
     Active Substance: TEDUGLUTIDE
     Indication: SHORT-BOWEL SYNDROME
     Dosage: 2.4 MILLIGRAM, (TED DAILY DOSE 0.05 MG/KG, DOSES PER WEEK 7)
     Route: 065
     Dates: start: 20160126, end: 201807
  4. TEDUGLUTIDE [Suspect]
     Active Substance: TEDUGLUTIDE
     Dosage: 2.4 MILLIGRAM, (TED DAILY DOSE 0.05 MG/KG, DOSES PER WEEK 7)
     Route: 065
     Dates: start: 201809
  5. TEDUGLUTIDE [Suspect]
     Active Substance: TEDUGLUTIDE
     Dosage: 2.6 MILLIGRAM, (TED DAILY DOSE 0.05 MG/KG, DOSES PER WEEK 7)
     Route: 065
     Dates: start: 201807, end: 201809
  6. PRADAXA [Concomitant]
     Active Substance: DABIGATRAN ETEXILATE MESYLATE
     Indication: PRODUCT USED FOR UNKNOWN INDICATION
  7. XARELTO [Concomitant]
     Active Substance: RIVAROXABAN
     Indication: PROTEIN S DEFICIENCY
  8. TEDUGLUTIDE [Suspect]
     Active Substance: TEDUGLUTIDE
     Dosage: 2.6 MILLIGRAM, (TED DAILY DOSE 0.05 MG/KG, DOSES PER WEEK 7)
     Route: 065
     Dates: start: 201807, end: 201809
  9. TEDUGLUTIDE [Suspect]
     Active Substance: TEDUGLUTIDE
     Dosage: 2.6 MILLIGRAM, (TED DAILY DOSE 0.05 MG/KG, DOSES PER WEEK 7)
     Route: 065
     Dates: start: 201807, end: 201809
  10. TEDUGLUTIDE [Suspect]
     Active Substance: TEDUGLUTIDE
     Dosage: 2.4 MILLIGRAM, (TED DAILY DOSE 0.05 MG/KG, DOSES PER WEEK 7)
     Route: 065
     Dates: start: 201809
  11. ARLEVERT [Concomitant]
     Active Substance: CINNARIZINE\DIMENHYDRINATE
     Indication: PRODUCT USED FOR UNKNOWN INDICATION
  12. TEDUGLUTIDE [Suspect]
     Active Substance: TEDUGLUTIDE
     Indication: SHORT-BOWEL SYNDROME
     Dosage: 2.4 MILLIGRAM, (TED DAILY DOSE 0.05 MG/KG, DOSES PER WEEK 7)
     Route: 065
     Dates: start: 20160126, end: 201807
  13. VERTIGOHEEL [HOMEOPATHICS NOS] [Concomitant]
     Indication: VERTIGO
  14. TEDUGLUTIDE [Suspect]
     Active Substance: TEDUGLUTIDE
     Indication: SHORT-BOWEL SYNDROME
     Dosage: 2.4 MILLIGRAM, (TED DAILY DOSE 0.05 MG/KG, DOSES PER WEEK 7)
     Route: 065
     Dates: start: 20160126, end: 201807
  15. TEDUGLUTIDE [Suspect]
     Active Substance: TEDUGLUTIDE
     Dosage: 2.6 MILLIGRAM, (TED DAILY DOSE 0.05 MG/KG, DOSES PER WEEK 7)
     Route: 065
     Dates: start: 201807, end: 201809
  16. TEDUGLUTIDE [Suspect]
     Active Substance: TEDUGLUTIDE
     Dosage: 2.4 MILLIGRAM, (TED DAILY DOSE 0.05 MG/KG, DOSES PER WEEK 7)
     Route: 065
     Dates: start: 201809

REACTIONS (2)
  - Catheter site abscess [Recovered/Resolved]
  - Lung infiltration [Not Recovered/Not Resolved]

NARRATIVE: CASE EVENT DATE: 201905
